FAERS Safety Report 24183167 (Version 2)
Quarter: 2024Q4

REPORT INFORMATION
  Report Type: Spontaneous
  Country: PT (occurrence: PT)
  Receive Date: 20240807
  Receipt Date: 20241003
  Transmission Date: 20250114
  Serious: Yes (Hospitalization)
  Sender: BIOGEN
  Company Number: PT-BIOGEN-2022BI01171957

PATIENT
  Age: 29 Year
  Sex: Female

DRUGS (1)
  1. TYSABRI [Suspect]
     Active Substance: NATALIZUMAB
     Indication: Relapsing-remitting multiple sclerosis
     Route: 050

REACTIONS (1)
  - Subcutaneous abscess [Unknown]
